FAERS Safety Report 11882148 (Version 1)
Quarter: 2015Q4

REPORT INFORMATION
  Report Type: Spontaneous
  Country: US (occurrence: US)
  Receive Date: 20151231
  Receipt Date: 20151231
  Transmission Date: 20160305
  Serious: No
  Sender: FDA-Public Use
  Company Number: US-BAYER-2015-495649

PATIENT
  Age: 69 Year
  Sex: Female
  Weight: 99.77 kg

DRUGS (5)
  1. CLARITIN [Suspect]
     Active Substance: LORATADINE
     Indication: COUGH
     Dosage: 4 DF, IN 23 HOURS
     Route: 048
     Dates: start: 20151222
  2. POTASSIUM [Concomitant]
     Active Substance: POTASSIUM
  3. MAGNESIUM [Concomitant]
     Active Substance: MAGNESIUM
  4. CALCIUM +VIT D [Concomitant]
     Active Substance: CALCIUM\VITAMIN D
  5. CLARITIN [Suspect]
     Active Substance: LORATADINE
     Indication: COUGH
     Dosage: 1 DF, QD
     Route: 048
     Dates: start: 201511

REACTIONS (4)
  - Product use issue [Unknown]
  - Pruritus [Unknown]
  - Product use issue [None]
  - Product use issue [Unknown]

NARRATIVE: CASE EVENT DATE: 201511
